FAERS Safety Report 6756433-1 (Version None)
Quarter: 2010Q2

REPORT INFORMATION
  Report Type: 
  Country: None (occurrence: None)
  Receive Date: 20100604
  Receipt Date: 20100527
  Transmission Date: 20101027
  Serious: Yes (Hospitalization)
  Sender: FDA-Public Use
  Company Number: A0861695A

PATIENT
  Age: 63 Year
  Sex: Male

DRUGS (4)
  1. COREG [Suspect]
     Indication: DRUG USE FOR UNKNOWN INDICATION
     Dosage: 12.5MG TWICE PER DAY
     Route: 048
  2. DYAZIDE [Suspect]
     Route: 048
  3. ZANTAC [Suspect]
     Indication: GASTRIC DISORDER
     Dosage: 150MG TWICE PER DAY
     Route: 048
  4. UNKNOWN [Concomitant]

REACTIONS (6)
  - BACK PAIN [None]
  - CONSTIPATION [None]
  - RENAL CANCER [None]
  - RENAL HAEMORRHAGE [None]
  - RENAL SURGERY [None]
  - VOMITING [None]
